FAERS Safety Report 8533529-5 (Version None)
Quarter: 2012Q3

REPORT INFORMATION
  Report Type: 
  Country: None (occurrence: None)
  Receive Date: 20120724
  Receipt Date: 20120719
  Transmission Date: 20120928
  Serious: Yes (Other)
  Sender: FDA-Public Use
  Company Number: US-PFIZER INC-2012175280

PATIENT
  Sex: Female

DRUGS (2)
  1. NEURONTIN [Suspect]
     Dosage: 600 MG, 4X/DAY
  2. VISTARIL [Suspect]
     Dosage: 50 MG, 4X/DAY

REACTIONS (2)
  - SURGERY [None]
  - NEOPLASM MALIGNANT [None]
